FAERS Safety Report 21301009 (Version 1)
Quarter: 2022Q3

REPORT INFORMATION
  Report Type: Spontaneous
  Country: DE (occurrence: DE)
  Receive Date: 20220907
  Receipt Date: 20220907
  Transmission Date: 20221027
  Serious: Yes (Other)
  Sender: FDA-Public Use
  Company Number: DE-002147023-NVSC2022DE198345

PATIENT
  Age: 34 Year
  Sex: Female
  Weight: 62 kg

DRUGS (20)
  1. XOLAIR [Suspect]
     Active Substance: OMALIZUMAB
     Indication: Asthma
     Dosage: 300 MG (150MG X2), EVERY 4 WEEKS
     Route: 058
     Dates: start: 2021, end: 202109
  2. XOLAIR [Suspect]
     Active Substance: OMALIZUMAB
     Indication: Chronic spontaneous urticaria
     Dosage: 300 MG (150MG X2), EVERY 4 WEEKS
     Route: 058
     Dates: start: 2021, end: 2022
  3. XOLAIR [Suspect]
     Active Substance: OMALIZUMAB
     Dosage: 300 MG (150MG X2), EVERY 4 WEEKS
     Route: 058
     Dates: start: 2022
  4. PREDNISOLONE [Suspect]
     Active Substance: PREDNISOLONE
     Indication: Urticaria
     Dosage: UNK, MOST RECENT DOSE /AUG/2021
     Route: 065
     Dates: start: 2021
  5. MONTELUKAST [Suspect]
     Active Substance: MONTELUKAST SODIUM
     Indication: Chronic spontaneous urticaria
     Dosage: 10 MG, QD
     Route: 065
     Dates: start: 2022
  6. RUPATADINE FUMARATE [Suspect]
     Active Substance: RUPATADINE FUMARATE
     Indication: Chronic spontaneous urticaria
     Dosage: UNK, Q6H (10 MG)
     Route: 065
     Dates: start: 2021
  7. NOVORAPID [Concomitant]
     Active Substance: INSULIN ASPART
     Indication: Type 1 diabetes mellitus
     Dosage: UNK
  8. TOUJEO [Concomitant]
     Active Substance: INSULIN GLARGINE
     Indication: Type 1 diabetes mellitus
  9. LEVOTHYROXINE [Concomitant]
     Active Substance: LEVOTHYROXINE
     Indication: Autoimmune thyroiditis
     Dosage: UNK
  10. SYMBICORT [Concomitant]
     Active Substance: BUDESONIDE\FORMOTEROL FUMARATE DIHYDRATE
     Indication: Asthma
     Dosage: UNK, BID
  11. ROSUVASTATIN [Concomitant]
     Active Substance: ROSUVASTATIN
     Indication: Asthma
  12. CANDESARTAN [Concomitant]
     Active Substance: CANDESARTAN
     Indication: Product used for unknown indication
     Dosage: UNK
  13. ERGOCALCIFEROL [Concomitant]
     Active Substance: ERGOCALCIFEROL
     Indication: Product used for unknown indication
     Dosage: UNK
  14. OXITRIPTAN [Concomitant]
     Active Substance: OXITRIPTAN
     Indication: Product used for unknown indication
     Dosage: UNK AS NEEDED
  15. NAPROXEN [Concomitant]
     Active Substance: NAPROXEN
     Indication: Product used for unknown indication
     Dosage: UNK. AS NEEDED
  16. INSULIN NOS [Concomitant]
     Active Substance: INSULIN NOS
     Indication: Product used for unknown indication
     Dosage: UNK
  17. PROPOFOL [Concomitant]
     Active Substance: PROPOFOL
     Indication: Product used for unknown indication
     Dosage: 220 MG
     Dates: start: 20211005, end: 20211005
  18. CLEMASTINE FUMARATE [Concomitant]
     Active Substance: CLEMASTINE FUMARATE
     Indication: Product used for unknown indication
     Dosage: UNK
     Dates: start: 2021, end: 2021
  19. EBASTINE [Concomitant]
     Active Substance: EBASTINE
     Indication: Product used for unknown indication
     Dosage: 10 MG, QD (1XDAILY)
     Dates: start: 2021, end: 2021
  20. EBASTINE [Concomitant]
     Active Substance: EBASTINE
     Dosage: 10 MG, BID (2-0-2, DAILY)
     Dates: start: 2021, end: 2021

REACTIONS (21)
  - Angioedema [Unknown]
  - Alpha haemolytic streptococcal infection [Unknown]
  - Neisseria infection [Unknown]
  - Urticaria [Recovering/Resolving]
  - Gastric disorder [Recovering/Resolving]
  - Swelling face [Recovering/Resolving]
  - Erythema [Unknown]
  - Helicobacter test positive [Unknown]
  - Chronic gastritis [Unknown]
  - Leukocytosis [Recovered/Resolved]
  - Lymphangiectasia [Unknown]
  - Blood lactate dehydrogenase increased [Unknown]
  - Tryptase increased [Recovered/Resolved]
  - Red blood cell count increased [Recovered/Resolved]
  - Haematocrit increased [Recovered/Resolved]
  - Platelet count increased [Unknown]
  - C-reactive protein increased [Not Recovered/Not Resolved]
  - Blood immunoglobulin E increased [Unknown]
  - Blood thyroid stimulating hormone abnormal [Unknown]
  - Blood glucose abnormal [Recovered/Resolved]
  - Off label use [Unknown]

NARRATIVE: CASE EVENT DATE: 20210101
